FAERS Safety Report 7740689-2 (Version None)
Quarter: 2011Q3

REPORT INFORMATION
  Report Type: 
  Country: None (occurrence: None)
  Receive Date: 20110909
  Receipt Date: 20110901
  Transmission Date: 20111222
  Serious: Yes (Hospitalization)
  Sender: FDA-Public Use
  Company Number: US-BAYER-201038129NA

PATIENT
  Age: 28 Year
  Sex: Female
  Weight: 66 kg

DRUGS (3)
  1. YASMIN [Suspect]
     Indication: ACNE
     Dosage: UNK
     Dates: start: 20060101
  2. AMBIEN [Concomitant]
     Indication: INSOMNIA
     Dosage: 10 MG, HS
     Route: 048
  3. ALLEGRA [Concomitant]
     Dosage: 180 MG, CONT
     Route: 048

REACTIONS (5)
  - ABDOMINAL PAIN [None]
  - INJURY [None]
  - SPLENIC VEIN THROMBOSIS [None]
  - PAIN [None]
  - SPLENIC INFARCTION [None]
